FAERS Safety Report 13952479 (Version 1)
Quarter: 2017Q3

REPORT INFORMATION
  Report Type: Spontaneous
  Country: US (occurrence: US)
  Receive Date: 20170911
  Receipt Date: 20170911
  Transmission Date: 20171128
  Serious: No
  Sender: FDA-Public Use
  Company Number: US-TEVA-729986ACC

PATIENT
  Age: 58 Year
  Sex: Female

DRUGS (2)
  1. FENTANYL. [Suspect]
     Active Substance: FENTANYL
     Dosage: 25 MCG/HR
     Dates: start: 2003, end: 2007
  2. FENTANYL. [Suspect]
     Active Substance: FENTANYL
     Dosage: 100 MCG/HR
     Dates: start: 2003, end: 2007

REACTIONS (2)
  - Product adhesion issue [Unknown]
  - Rash [Unknown]
